FAERS Safety Report 16235139 (Version 3)
Quarter: 2022Q4

REPORT INFORMATION
  Report Type: Report from Study
  Country: US (occurrence: US)
  Receive Date: 20190424
  Receipt Date: 20221005
  Transmission Date: 20230112
  Serious: No
  Sender: FDA-Public Use
  Company Number: US-SHIRE-US201913395

PATIENT
  Sex: Male

DRUGS (1)
  1. IDURSULFASE [Suspect]
     Active Substance: IDURSULFASE
     Indication: Mucopolysaccharidosis II
     Dosage: UNK UNK, 1/WEEK
     Route: 042

REACTIONS (4)
  - Illness [Unknown]
  - Rhinorrhoea [Unknown]
  - Pyrexia [Unknown]
  - Product dose omission issue [Unknown]
